FAERS Safety Report 5083190-X (Version None)
Quarter: 2006Q3

REPORT INFORMATION
  Report Type: 
  Country: None (occurrence: None)
  Receive Date: 20060724
  Receipt Date: 20031121
  Transmission Date: 20061208
  Serious: Yes (Hospitalization)
  Sender: FDA-Public Use
  Company Number: DRON00206001355

PATIENT

DRUGS (7)
  1. MARINOL [Suspect]
     Indication: MULTIPLE SCLEROSIS
     Dosage: 1 DOSAGE FORM BID ORAL DAILY DOSE: TITRATION DOSE OF 5 MG TO 15 MG
     Route: 048
     Dates: start: 20010904, end: 20011206
  2. ATENOLOL [Concomitant]
  3. BACLOFEN [Concomitant]
  4. DANTROLENE [Concomitant]
  5. EVENING PRIMROSE OIL [Concomitant]
  6. METHYLPREDNISOLONE [Concomitant]
  7. PARACETAMOL [Concomitant]

REACTIONS (1)
  - MULTIPLE SCLEROSIS RELAPSE [None]
